FAERS Safety Report 6235482-6 (Version None)
Quarter: 2009Q2

REPORT INFORMATION
  Report Type: 
  Country: None (occurrence: None)
  Receive Date: 20090618
  Receipt Date: 20080513
  Transmission Date: 20091009
  Serious: No
  Sender: FDA-Public Use
  Company Number: US-ASTRAZENECA-2008UW09834

PATIENT
  Age: 84 Year
  Sex: Female

DRUGS (5)
  1. RHINOCORT [Suspect]
     Indication: SINUS DISORDER
     Dosage: 32 UG ONE SPRAY PER NOSTRIL QD OR BID
     Route: 045
     Dates: start: 20080401
  2. CODEINE [Concomitant]
  3. SUDAFED 12 HOUR [Concomitant]
  4. LOPRESSOR [Concomitant]
  5. HYDROCHLOROTHIAZIDE [Concomitant]

REACTIONS (2)
  - DYSPHONIA [None]
  - VISION BLURRED [None]
